FAERS Safety Report 21410593 (Version 1)
Quarter: 2022Q4

REPORT INFORMATION
  Report Type: Spontaneous
  Country: IN (occurrence: IN)
  Receive Date: 20221005
  Receipt Date: 20221005
  Transmission Date: 20230113
  Serious: Yes (Death)
  Sender: FDA-Public Use
  Company Number: IN-ASTELLAS-2022US035051

PATIENT
  Age: 46 Year
  Sex: Female

DRUGS (9)
  1. AMBISOME [Suspect]
     Active Substance: AMPHOTERICIN B
     Indication: Mucormycosis
     Route: 042
  2. VEKLURY [Suspect]
     Active Substance: REMDESIVIR
     Indication: COVID-19
     Route: 042
  3. VEKLURY [Suspect]
     Active Substance: REMDESIVIR
     Dosage: 200 MG, OTHER (ONCE)
     Route: 042
  4. METHYLPREDNISOLONE [Suspect]
     Active Substance: METHYLPREDNISOLONE
     Indication: COVID-19
     Route: 065
  5. METHYLPREDNISOLONE [Suspect]
     Active Substance: METHYLPREDNISOLONE
     Route: 065
  6. LUPENOX [Concomitant]
     Indication: Product used for unknown indication
     Dosage: 0.6 ML, EVERY 12 HOURS
     Route: 058
  7. LUPENOX [Concomitant]
     Dosage: 0.4 ML, EVERY 12 HOURS
     Route: 058
  8. INSULIN HUMAN [Concomitant]
     Active Substance: INSULIN HUMAN
     Indication: Product used for unknown indication
     Dosage: UNK UNK, UNKNOWN FREQ. SLIDING SCALE
     Route: 065
  9. OXYGEN [Concomitant]
     Active Substance: OXYGEN
     Indication: Product used for unknown indication
     Dosage: UNK UNK, UNKNOWN FREQ. 6-12 L/MIN
     Route: 065

REACTIONS (2)
  - Drug ineffective [Fatal]
  - Off label use [Recovered/Resolved]
